FAERS Safety Report 20185865 (Version 3)
Quarter: 2022Q1

REPORT INFORMATION
  Report Type: Report from Study
  Country: PT (occurrence: PT)
  Receive Date: 20211215
  Receipt Date: 20220224
  Transmission Date: 20220423
  Serious: Yes (Hospitalization)
  Sender: FDA-Public Use
  Company Number: PT-CELLTRION INC.-2021PT016665

PATIENT

DRUGS (33)
  1. TRASTUZUMAB [Suspect]
     Active Substance: TRASTUZUMAB
     Indication: HER2 positive breast cancer
     Dosage: UNK, EVERY 3 WEEKS (MOST RECENT DOSE PRIOR TO THE EVENT: 14/MAY/2021)
     Route: 065
     Dates: start: 20210514
  2. TRASTUZUMAB [Suspect]
     Active Substance: TRASTUZUMAB
     Dosage: UNK, EVERY 3 WEEKS (MOST RECENT DOSE PRIOR TO THE EVENT: 14/MAY/2021)
     Route: 065
     Dates: start: 20200207, end: 20210423
  3. TRASTUZUMAB [Suspect]
     Active Substance: TRASTUZUMAB
     Dosage: UNK, EVERY 3 WEEKS
     Route: 065
     Dates: start: 20190724, end: 20191129
  4. LETROZOLE [Suspect]
     Active Substance: LETROZOLE
     Indication: HER2 positive breast cancer
     Dosage: EVERY 3 WEEKS
     Route: 048
     Dates: start: 20200207
  5. PACLITAXEL [Suspect]
     Active Substance: PACLITAXEL
     Indication: HER2 positive breast cancer
     Dosage: UNK, 1/WEEK
     Route: 065
     Dates: start: 20190724, end: 20200207
  6. PERTUZUMAB [Suspect]
     Active Substance: PERTUZUMAB
     Indication: HER2 positive breast cancer
     Dosage: UNK EVERY 3 WEEKS
     Route: 065
     Dates: start: 20200207, end: 20210423
  7. PERTUZUMAB [Suspect]
     Active Substance: PERTUZUMAB
     Dosage: UNK EVERY 3 WEEKS
     Route: 065
     Dates: start: 20190724, end: 20191129
  8. PERTUZUMAB [Suspect]
     Active Substance: PERTUZUMAB
     Dosage: UNK EVERY 3 WEEKS (MOST RECENT DOSE PRIOR TO THE EVENT: 14/MAY/2021)
     Route: 065
     Dates: start: 20210514
  9. LACTULOSE [Concomitant]
     Active Substance: LACTULOSE
     Indication: Constipation
     Dosage: ONGOING = CHECKED
  10. METOCLOPRAMIDE [Concomitant]
     Active Substance: METOCLOPRAMIDE
     Dosage: ONGOING = CHECKED
     Route: 050
  11. DEXAMETHASONE [Concomitant]
     Active Substance: DEXAMETHASONE
     Dosage: ONGOING = CHECKED
     Route: 048
  12. POLYETHYLENE GLYCOLS [Concomitant]
     Active Substance: POLYETHYLENE GLYCOLS
     Dosage: ONGOING = CHECKED
     Route: 048
     Dates: start: 20200124
  13. PREGABALIN [Concomitant]
     Active Substance: PREGABALIN
     Dosage: 50MG EVERY 0.5 DAY, ONGOING = CHECKED
     Route: 048
  14. PANTOPRAZOLE [Concomitant]
     Active Substance: PANTOPRAZOLE
     Dosage: ONGOING = CHECKED
     Route: 048
  15. TRAMADOL [Concomitant]
     Active Substance: TRAMADOL
     Indication: Pain
     Dosage: 100MG EVERY 0.5 DAY, ONGOING = CHECKED
     Route: 048
  16. TRAMADOL [Concomitant]
     Active Substance: TRAMADOL
     Dosage: 50 MG, ONGOING = CHECKED
     Route: 048
  17. ZOLEDRONIC ACID [Concomitant]
     Active Substance: ZOLEDRONIC ACID
     Dosage: ONGOING = CHECKED
     Dates: start: 20190723
  18. BISOPROLOL [Concomitant]
     Active Substance: BISOPROLOL
     Dosage: ONGOING = CHECKED
     Route: 048
  19. BISOPROLOL [Concomitant]
     Active Substance: BISOPROLOL
     Dosage: 5 MG
     Route: 048
     Dates: start: 20211012, end: 20211022
  20. DULOXETINE [Concomitant]
     Active Substance: DULOXETINE
     Dosage: ONGOING = CHECKED
     Dates: start: 20200522
  21. CALCIUM\CHOLECALCIFEROL [Concomitant]
     Active Substance: CALCIUM\CHOLECALCIFEROL
     Dosage: ONGOING = CHECKED
     Route: 048
  22. ACETAMINOPHEN [Concomitant]
     Active Substance: ACETAMINOPHEN
     Dosage: ONGOING = CHECKED
     Route: 048
  23. PERINDOPRIL [Concomitant]
     Active Substance: PERINDOPRIL
     Dosage: ONGOING = CHECKED
     Route: 048
     Dates: start: 20191129
  24. PERINDOPRIL [Concomitant]
     Active Substance: PERINDOPRIL
     Dosage: ONGOING = CHECKED
     Route: 048
     Dates: start: 20191128
  25. PERINDOPRIL [Concomitant]
     Active Substance: PERINDOPRIL
     Dosage: ONGOING = CHECKED
     Route: 048
     Dates: start: 20211012, end: 20211012
  26. METAMIZOL [Concomitant]
     Active Substance: METAMIZOLE SODIUM
     Indication: Pain
     Dosage: ONGOING = CHECKED
     Route: 048
  27. ZOLPIDEM [Concomitant]
     Active Substance: ZOLPIDEM TARTRATE
     Dosage: ONGOING = CHECKED
     Route: 048
  28. LOPERAMIDE [Concomitant]
     Active Substance: LOPERAMIDE
     Indication: Diarrhoea
     Dosage: ONGOING = CHECKED
     Route: 048
  29. IBUPROFEN [Concomitant]
     Active Substance: IBUPROFEN
     Dosage: 600 MG, EVERY 0.5 DAY
     Route: 048
     Dates: start: 20191115, end: 20191118
  30. CLEMASTINE [Concomitant]
     Active Substance: CLEMASTINE
     Dosage: 2 MG
     Route: 042
     Dates: start: 20210129, end: 20210129
  31. TRIMETHOPRIM [Concomitant]
     Active Substance: TRIMETHOPRIM
     Dosage: 160 MG, EVERY 0.5 DAY
     Route: 048
     Dates: start: 20200309, end: 20200319
  32. SULFAMETHOXAZOLE [Concomitant]
     Active Substance: SULFAMETHOXAZOLE
     Dosage: 800 MG, BID
     Route: 048
     Dates: start: 20200309, end: 20200319
  33. HYDROCORTISONE [Concomitant]
     Active Substance: HYDROCORTISONE
     Dosage: 100 MG
     Route: 042
     Dates: start: 20210129, end: 20210129

REACTIONS (1)
  - Cerebrovascular accident [Recovered/Resolved]

NARRATIVE: CASE EVENT DATE: 20211011
